FAERS Safety Report 5334437-3 (Version None)
Quarter: 2007Q2

REPORT INFORMATION
  Report Type: 
  Country: None (occurrence: None)
  Receive Date: 20070525
  Receipt Date: 20061127
  Transmission Date: 20071010
  Serious: No
  Sender: FDA-Public Use
  Company Number: A0626759A

PATIENT
  Age: 32 Year
  Sex: Female
  Weight: 84.4 kg

DRUGS (7)
  1. FLOLAN [Suspect]
     Dosage: 21.5NGKM CONTINUOUS
     Route: 042
     Dates: start: 20060703
  2. DIGOXIN [Concomitant]
     Dosage: .125MG UNKNOWN
     Route: 048
  3. TRAMADOL HCL [Concomitant]
     Dosage: 50MG UNKNOWN
     Route: 048
  4. COUMADIN [Concomitant]
     Dosage: 5MG UNKNOWN
     Route: 048
     Dates: start: 20061010
  5. POTASSIUM CHLORIDE [Concomitant]
     Dosage: 20MEQ PER DAY
     Route: 048
  6. ALDACTONE [Concomitant]
     Dosage: 25MG TWICE PER DAY
     Route: 048
  7. LASIX [Concomitant]
     Dosage: 20MG PER DAY
     Route: 048

REACTIONS (1)
  - SALIVARY HYPERSECRETION [None]
